FAERS Safety Report 4360904-5 (Version None)
Quarter: 2004Q2

REPORT INFORMATION
  Report Type: 
  Country: None (occurrence: None)
  Receive Date: 20040517
  Receipt Date: 20040504
  Transmission Date: 20050107
  Serious: Yes (Death)
  Sender: FDA-Public Use
  Company Number: DE-JNJFOC-20040401799

PATIENT
  Age: 78 Year
  Sex: Male
  Weight: 85 kg

DRUGS (5)
  1. DURAGESIC [Suspect]
     Indication: CANCER PAIN
     Dosage: 25 UG/HR, 1 IN 72 HOUR, TRANSDERMAL
     Route: 062
  2. CODEIN (CODEINE) DROPS [Concomitant]
  3. AMBROXOL (AMBROXOL) SOLUTION [Concomitant]
  4. AMINO ACIDS AND ELECTROLYTES (ALL OTHER NON THERAPEUTIC PRODUCTS) SOLU [Concomitant]
  5. LEVOFLOXACIN [Concomitant]

REACTIONS (5)
  - CARDIOVASCULAR DISORDER [None]
  - COMA [None]
  - DYSPNOEA [None]
  - MIOSIS [None]
  - RESPIRATORY FAILURE [None]
